FAERS Safety Report 7994786-7 (Version None)
Quarter: 2011Q4

REPORT INFORMATION
  Report Type: 
  Country: None (occurrence: None)
  Receive Date: 20111217
  Receipt Date: 20111217
  Transmission Date: 20120403
  Serious: Yes (Other)
  Sender: FDA-Public Use
  Company Number: None

PATIENT
  Age: 43 Year
  Sex: Female
  Weight: 75 kg

DRUGS (14)
  1. VITAMIN C [Concomitant]
  2. FRAGMIN [Concomitant]
  3. AMIKACIN [Concomitant]
  4. COLACE [Concomitant]
  5. MORPHINE [Concomitant]
  6. LORAZEPAM [Concomitant]
  7. MIRTAZAPINE [Concomitant]
  8. ZOFRAN [Concomitant]
  9. SUCRALFATE [Concomitant]
  10. CYCLOBENZAPRINE [Concomitant]
  11. DAPTOMYCIN 450 MG [Suspect]
     Indication: ENTEROCOCCAL INFECTION
     Dosage: 450 MG ONCE DAILY IV
     Route: 042
     Dates: start: 20111119, end: 20111201
  12. ACETAMINOPHEN [Concomitant]
  13. OXYCODONE HCL [Concomitant]
  14. FLUOXETINE [Concomitant]

REACTIONS (1)
  - BLOOD CREATINE PHOSPHOKINASE INCREASED [None]
